FAERS Safety Report 9505656 (Version 1)
Quarter: 2013Q1

REPORT INFORMATION
  Report Type: Spontaneous
  Country: US (occurrence: None)
  Receive Date: 20130220
  Receipt Date: 20130220
  Transmission Date: 20140127
  Serious: No
  Sender: FDA-Public Use
  Company Number: 1000039864

PATIENT
  Age: 81 Year
  Sex: Male

DRUGS (3)
  1. VIIBRYD (VILAZODONE HYDROCHLORIDE) [Suspect]
  2. ATIVAN (LORAZEPAM) (LORAZEPAM) [Concomitant]
  3. HALDOL (HALOPERIODL) (HALOPERIDOL) [Concomitant]

REACTIONS (2)
  - Confusional state [None]
  - Agitation [None]
